FAERS Safety Report 5885612-0 (Version None)
Quarter: 2008Q3

REPORT INFORMATION
  Report Type: 
  Country: None (occurrence: None)
  Receive Date: 20080916
  Receipt Date: 20080910
  Transmission Date: 20090109
  Serious: Yes (Hospitalization)
  Sender: FDA-Public Use
  Company Number: US-ABBOTT-08P-163-0475248-00

PATIENT
  Age: 50 Decade
  Sex: Male
  Weight: 72.7 kg

DRUGS (1)
  1. BIAXIN [Suspect]
     Indication: DRUG USE FOR UNKNOWN INDICATION
     Route: 048

REACTIONS (3)
  - AGGRESSION [None]
  - DELUSIONAL DISORDER, UNSPECIFIED TYPE [None]
  - PSYCHOTIC DISORDER [None]
